FAERS Safety Report 4837546-8 (Version None)
Quarter: 2005Q4

REPORT INFORMATION
  Report Type: 
  Country: None (occurrence: None)
  Receive Date: 20051123
  Receipt Date: 20051123
  Transmission Date: 20060501
  Serious: Yes (Hospitalization)
  Sender: FDA-Public Use
  Company Number: None

PATIENT
  Age: 76 Year
  Sex: Male
  Weight: 88 kg

DRUGS (10)
  1. WARFARIN SODIUM [Suspect]
     Dosage: ORAL
     Route: 048
  2. HYDRALAZINE HCL [Concomitant]
  3. AZITHROMYCIN [Concomitant]
  4. ISOSORBIDE DINITRATE [Concomitant]
  5. SENNOSIDES [Concomitant]
  6. ALBUTEROL / IPRATROP [Concomitant]
  7. ALBUTEROL [Concomitant]
  8. GATIFLOXACIN [Concomitant]
  9. METOPROLOL TARTRATE [Concomitant]
  10. HYDROCHLOROTHIAZIDE [Concomitant]

REACTIONS (1)
  - GASTROINTESTINAL HAEMORRHAGE [None]
